FAERS Safety Report 9816110 (Version 1)
Quarter: 2014Q1

REPORT INFORMATION
  Report Type: Spontaneous
  Country: US (occurrence: US)
  Receive Date: 20140114
  Receipt Date: 20140114
  Transmission Date: 20141002
  Serious: Yes (Death)
  Sender: FDA-Public Use
  Company Number: US-PFIZER INC-2014006805

PATIENT
  Age: 86 Year
  Sex: Female

DRUGS (7)
  1. AMLODIPINE BESILATE [Suspect]
     Dosage: UNK
  2. ACETAMINOPHEN [Suspect]
     Dosage: UNK
  3. QUETIAPINE [Suspect]
     Dosage: UNK
  4. BUPROPION [Suspect]
     Dosage: UNK
  5. TOPIRAMATE [Suspect]
     Dosage: UNK
  6. DORZOLAMIDE HCL AND TIMOLOL MALEATE [Suspect]
     Dosage: UNK
  7. SIMVASTATIN [Suspect]
     Dosage: UNK

REACTIONS (1)
  - Death [Fatal]
